FAERS Safety Report 7641921-6 (Version None)
Quarter: 2011Q3

REPORT INFORMATION
  Report Type: 
  Country: None (occurrence: None)
  Receive Date: 20110728
  Receipt Date: 20110715
  Transmission Date: 20111222
  Serious: Yes (Death)
  Sender: FDA-Public Use
  Company Number: JP-ROCHE-791406

PATIENT
  Age: 75 Year
  Sex: Male

DRUGS (2)
  1. ACTEMRA [Suspect]
     Indication: LUNG NEOPLASM MALIGNANT
     Dosage: DOSAGE IS UNCERTAIN.
     Route: 041
     Dates: start: 20100101
  2. ALIMTA [Concomitant]

REACTIONS (1)
  - DEATH [None]
